FAERS Safety Report 8361070-1 (Version None)
Quarter: 2012Q2

REPORT INFORMATION
  Report Type: 
  Country: None (occurrence: None)
  Receive Date: 20120515
  Receipt Date: 20120505
  Transmission Date: 20120825
  Serious: Yes (Hospitalization)
  Sender: FDA-Public Use
  Company Number: US-ROCHE-1066291

PATIENT
  Age: 85 Year
  Sex: Male
  Weight: 66.5 kg

DRUGS (3)
  1. OCTREOTIDE ACETATE [Suspect]
     Dosage: DAY ONE CYCLE ONE
     Route: 058
     Dates: start: 20111123
  2. AVASTIN [Suspect]
     Indication: NEUROENDOCRINE CARCINOMA
     Dosage: OVER 30-90 MIN ON DAY 1, LAST DOSE PRIO TO SAE 08/MAR/2012
     Route: 042
     Dates: start: 20111123
  3. OCTREOTIDE ACETATE [Suspect]
     Indication: NEUROENDOCRINE CARCINOMA
     Dosage: DAY ONE
     Route: 030
     Dates: start: 20111123

REACTIONS (1)
  - AORTIC INJURY [None]
